FAERS Safety Report 8285170-X (Version None)
Quarter: 2012Q2

REPORT INFORMATION
  Report Type: 
  Country: None (occurrence: None)
  Receive Date: 20120413
  Receipt Date: 20120206
  Transmission Date: 20120825
  Serious: No
  Sender: FDA-Public Use
  Company Number: US-ASTRAZENECA-2012SE07870

PATIENT
  Age: 53 Year
  Sex: Male
  Weight: 90.7 kg

DRUGS (6)
  1. ALOE VERA [Concomitant]
  2. VITAMIN D [Concomitant]
     Indication: MINERAL SUPPLEMENTATION
  3. NEXIUM [Suspect]
     Indication: GASTROOESOPHAGEAL REFLUX DISEASE
     Route: 048
     Dates: start: 20010301
  4. CALCIUM CITRATE [Concomitant]
     Indication: MINERAL SUPPLEMENTATION
  5. MULTI-VITAMINS [Concomitant]
     Indication: VITAMIN SUPPLEMENTATION
  6. FISH OIL [Concomitant]
     Indication: SUPPLEMENTATION THERAPY

REACTIONS (3)
  - ABDOMINAL DISCOMFORT [None]
  - BONE DENSITY ABNORMAL [None]
  - GASTROOESOPHAGEAL REFLUX DISEASE [None]
